FAERS Safety Report 4944570-3 (Version None)
Quarter: 2006Q1

REPORT INFORMATION
  Report Type: 
  Country: None (occurrence: None)
  Receive Date: 20060117
  Receipt Date: 20051122
  Transmission Date: 20060701
  Serious: Yes (Other)
  Sender: FDA-Public Use
  Company Number: 2005160220

PATIENT
  Age: 74 Year
  Sex: Female
  Weight: 65.7716 kg

DRUGS (10)
  1. MACUGEN [Suspect]
     Indication: MACULAR DEGENERATION
     Dosage: INTRAOCULAR
     Route: 031
     Dates: start: 20051122
  2. ANTIBIOTICS FOR TOPICAL USE [Concomitant]
  3. PHOSPHORUS [Concomitant]
  4. LASIX [Concomitant]
  5. IMDUR [Concomitant]
  6. HYZAAR [Concomitant]
  7. ACCOLATE [Concomitant]
  8. AMITRIPTYLINE HCL [Concomitant]
  9. LORAZEPAM [Concomitant]
  10. LOMOTIL [Concomitant]

REACTIONS (3)
  - ABNORMAL SENSATION IN EYE [None]
  - OCULAR HYPERAEMIA [None]
  - VISUAL DISTURBANCE [None]
